FAERS Safety Report 17171715 (Version 2)
Quarter: 2019Q4

REPORT INFORMATION
  Report Type: Spontaneous
  Country: EG (occurrence: EG)
  Receive Date: 20191218
  Receipt Date: 20191226
  Transmission Date: 20200122
  Serious: Yes (Death)
  Sender: FDA-Public Use
  Company Number: EG-JNJFOC-20191215144

PATIENT
  Age: 21 Year
  Sex: Male

DRUGS (1)
  1. INVEGA SUSTENNA [Suspect]
     Active Substance: PALIPERIDONE PALMITATE
     Indication: PSYCHOTIC DISORDER
     Route: 030

REACTIONS (2)
  - Completed suicide [Fatal]
  - Treatment noncompliance [Unknown]
